FAERS Safety Report 12473445 (Version 2)
Quarter: 2016Q3

REPORT INFORMATION
  Report Type: Spontaneous
  Country: DK (occurrence: DK)
  Receive Date: 20160616
  Receipt Date: 20160808
  Transmission Date: 20161109
  Serious: Yes (Other)
  Sender: FDA-Public Use
  Company Number: DK-GLAXOSMITHKLINE-DK2016GSK084687

PATIENT
  Age: 65 Year
  Sex: Male

DRUGS (1)
  1. NICOTINELL [Suspect]
     Active Substance: NICOTINE
     Indication: PRODUCT USED FOR UNKNOWN INDICATION
     Dosage: 1 MG, UNK
     Route: 065
     Dates: start: 201507

REACTIONS (4)
  - Incorrect dose administered [Unknown]
  - Dependence [Not Recovered/Not Resolved]
  - Incorrect drug administration duration [Unknown]
  - Lung disorder [Unknown]
